FAERS Safety Report 10766723 (Version 2)
Quarter: 2015Q1

REPORT INFORMATION
  Report Type: Spontaneous
  Country: TR (occurrence: TR)
  Receive Date: 20150205
  Receipt Date: 20150306
  Transmission Date: 20150721
  Serious: Yes (Hospitalization)
  Sender: FDA-Public Use
  Company Number: TR-JNJFOC-20150116572

PATIENT
  Age: 15 Year
  Sex: Female
  Weight: 51 kg

DRUGS (1)
  1. RISPERDAL [Suspect]
     Active Substance: RISPERIDONE
     Indication: MENTAL DISORDER
     Route: 048

REACTIONS (6)
  - Suicide attempt [Unknown]
  - Speech disorder [Unknown]
  - Muscle contractions involuntary [Unknown]
  - Overdose [Unknown]
  - Syncope [Unknown]
  - Fall [Unknown]

NARRATIVE: CASE EVENT DATE: 20141202
